FAERS Safety Report 4485190-7 (Version None)
Quarter: 2004Q4

REPORT INFORMATION
  Report Type: 
  Country: None (occurrence: None)
  Receive Date: 20041026
  Receipt Date: 20040317
  Transmission Date: 20050328
  Serious: No
  Sender: FDA-Public Use
  Company Number: US-BRISTOL-MYERS SQUIBB COMPANY-12535977

PATIENT
  Age: 60 Year
  Sex: Female
  Weight: 82 kg

DRUGS (7)
  1. GLUCOPHAGE XR [Suspect]
     Indication: DIABETES MELLITUS
     Route: 048
     Dates: start: 20040220
  2. GLYBURIDE [Concomitant]
     Dates: start: 20040221
  3. ENALAPRIL MALEATE [Concomitant]
     Dates: start: 20040221
  4. VERAPAMIL [Concomitant]
  5. DIURETIC [Concomitant]
  6. ASPIRIN [Concomitant]
  7. GARLIC [Concomitant]
     Dates: end: 20040317

REACTIONS (9)
  - COLD SWEAT [None]
  - DIARRHOEA [None]
  - EYE PRURITUS [None]
  - FEELING COLD [None]
  - HYPERHIDROSIS [None]
  - NAUSEA [None]
  - OEDEMA PERIPHERAL [None]
  - TREMOR [None]
  - VOMITING [None]
